FAERS Safety Report 22290931 (Version 2)
Quarter: 2023Q2

REPORT INFORMATION
  Report Type: Report from Study
  Country: US (occurrence: US)
  Receive Date: 20230506
  Receipt Date: 20230509
  Transmission Date: 20230722
  Serious: Yes (Other)
  Sender: FDA-Public Use
  Company Number: US-ABBVIE-4755251

PATIENT
  Age: 42 Year
  Sex: Female
  Weight: 56 kg

DRUGS (30)
  1. VENCLEXTA [Suspect]
     Active Substance: VENETOCLAX
     Indication: Diffuse large B-cell lymphoma
     Route: 048
     Dates: start: 20230331, end: 20230414
  2. PREDNISONE [Concomitant]
     Active Substance: PREDNISONE
     Indication: Diffuse large B-cell lymphoma
     Route: 037
     Dates: start: 20221107, end: 202302
  3. PREDNISONE [Concomitant]
     Active Substance: PREDNISONE
     Indication: Diffuse large B-cell lymphoma
     Route: 037
     Dates: start: 20221015, end: 20230107
  4. PREDNISONE [Concomitant]
     Active Substance: PREDNISONE
     Indication: Diffuse large B-cell lymphoma
     Route: 037
     Dates: start: 20230414
  5. PREDNISONE [Concomitant]
     Active Substance: PREDNISONE
     Indication: Diffuse large B-cell lymphoma
     Route: 037
     Dates: start: 20230331, end: 20230414
  6. IBRUTINIB [Concomitant]
     Active Substance: IBRUTINIB
     Indication: Diffuse large B-cell lymphoma
     Route: 048
     Dates: start: 20230331, end: 20230414
  7. IBRUTINIB [Concomitant]
     Active Substance: IBRUTINIB
     Indication: Diffuse large B-cell lymphoma
     Route: 048
     Dates: start: 20230310, end: 20230331
  8. VINCRISTINE SULFATE [Concomitant]
     Active Substance: VINCRISTINE SULFATE
     Indication: Diffuse large B-cell lymphoma
     Route: 037
     Dates: start: 20221015, end: 20221207
  9. VINCRISTINE SULFATE [Concomitant]
     Active Substance: VINCRISTINE SULFATE
     Indication: Diffuse large B-cell lymphoma
     Route: 037
     Dates: start: 20221107, end: 20230414
  10. RITUXAN [Suspect]
     Active Substance: RITUXIMAB
     Indication: Diffuse large B-cell lymphoma
     Dosage: TAKEN AS R-CHOP
     Route: 065
     Dates: start: 20221015, end: 20221107
  11. RITUXAN [Suspect]
     Active Substance: RITUXIMAB
     Indication: Diffuse large B-cell lymphoma
     Dosage: TAKEN AS TEDDI-R
     Route: 037
     Dates: start: 20230310, end: 20230331
  12. RITUXAN [Suspect]
     Active Substance: RITUXIMAB
     Indication: Diffuse large B-cell lymphoma
     Dosage: TAKEN AS R-EPOCH WITH COPANLISIB
     Route: 065
     Dates: start: 20230414
  13. RITUXAN [Suspect]
     Active Substance: RITUXIMAB
     Indication: Diffuse large B-cell lymphoma
     Dosage: TAKEN AS R-EPOCH
     Route: 065
     Dates: start: 20221107, end: 202302
  14. TEMOZOLOMIDE [Concomitant]
     Active Substance: TEMOZOLOMIDE
     Indication: Diffuse large B-cell lymphoma
     Route: 048
     Dates: start: 20230310, end: 20230331
  15. GAZYVA [Suspect]
     Active Substance: OBINUTUZUMAB
     Indication: Diffuse large B-cell lymphoma
     Route: 065
     Dates: start: 20230331, end: 20230414
  16. ETOPOSIDE [Concomitant]
     Active Substance: ETOPOSIDE
     Indication: Diffuse large B-cell lymphoma
     Route: 037
     Dates: start: 20230310, end: 20230331
  17. ETOPOSIDE [Concomitant]
     Active Substance: ETOPOSIDE
     Indication: Diffuse large B-cell lymphoma
     Route: 037
     Dates: start: 20221107, end: 202302
  18. ETOPOSIDE [Concomitant]
     Active Substance: ETOPOSIDE
     Indication: Diffuse large B-cell lymphoma
     Route: 037
     Dates: start: 20230414
  19. DOXORUBICIN HYDROCHLORIDE [Concomitant]
     Active Substance: DOXORUBICIN HYDROCHLORIDE
     Indication: Diffuse large B-cell lymphoma
     Route: 065
     Dates: start: 20230310, end: 20230331
  20. DOXORUBICIN HYDROCHLORIDE [Concomitant]
     Active Substance: DOXORUBICIN HYDROCHLORIDE
     Indication: Diffuse large B-cell lymphoma
     Dosage: TAKEN AS R-CHOP
     Route: 065
     Dates: start: 20221015, end: 20221107
  21. DOXORUBICIN HYDROCHLORIDE [Concomitant]
     Active Substance: DOXORUBICIN HYDROCHLORIDE
     Indication: Diffuse large B-cell lymphoma
     Dosage: TAKEN AS R-EPOCH
     Route: 065
     Dates: start: 20221107, end: 202302
  22. DOXORUBICIN HYDROCHLORIDE [Concomitant]
     Active Substance: DOXORUBICIN HYDROCHLORIDE
     Indication: Diffuse large B-cell lymphoma
     Dosage: TAKEN AS R-EPOCH WITH COPANLISIB
     Route: 065
     Dates: start: 20230414
  23. CYCLOPHOSPHAMIDE [Concomitant]
     Active Substance: CYCLOPHOSPHAMIDE
     Indication: Diffuse large B-cell lymphoma
     Dosage: TAKEN AS R-CHOP
     Route: 037
     Dates: start: 20230414
  24. CYCLOPHOSPHAMIDE [Concomitant]
     Active Substance: CYCLOPHOSPHAMIDE
     Indication: Diffuse large B-cell lymphoma
     Dosage: TAKEN AS R-EPOCH WITH COPANLISIB
     Dates: start: 20221015, end: 20221107
  25. CYCLOPHOSPHAMIDE [Concomitant]
     Active Substance: CYCLOPHOSPHAMIDE
     Indication: Diffuse large B-cell lymphoma
     Dosage: TAKEN AS R-EPOCH
     Route: 037
     Dates: start: 20221107, end: 202302
  26. DEXAMETHASONE [Concomitant]
     Active Substance: DEXAMETHASONE
     Indication: Diffuse large B-cell lymphoma
     Route: 065
     Dates: start: 20230310, end: 20230331
  27. LENALIDOMIDE [Concomitant]
     Active Substance: LENALIDOMIDE
     Indication: Diffuse large B-cell lymphoma
     Route: 065
     Dates: start: 20230331, end: 20230414
  28. CYTARABINE [Concomitant]
     Active Substance: CYTARABINE
     Indication: Diffuse large B-cell lymphoma
     Route: 037
     Dates: start: 20230414
  29. COPANLISIB [Concomitant]
     Active Substance: COPANLISIB
     Indication: Diffuse large B-cell lymphoma
     Route: 037
     Dates: start: 20230414
  30. GLOFITAMAB [Concomitant]
     Active Substance: GLOFITAMAB
     Indication: Product used for unknown indication

REACTIONS (7)
  - Diffuse large B-cell lymphoma [Not Recovered/Not Resolved]
  - Cytopenia [Recovered/Resolved]
  - Off label use [Unknown]
  - Off label use [Unknown]
  - Mucosal inflammation [Recovered/Resolved]
  - Abdominal mass [Unknown]
  - Febrile neutropenia [Recovered/Resolved]

NARRATIVE: CASE EVENT DATE: 20230331
